FAERS Safety Report 22639491 (Version 1)
Quarter: 2023Q2

REPORT INFORMATION
  Report Type: Other
  Country: IN (occurrence: IN)
  Receive Date: 20230626
  Receipt Date: 20230626
  Transmission Date: 20230722
  Serious: Yes (Other)
  Sender: FDA-Public Use
  Company Number: IN-LOTUS-2022-LOTUS-049495

PATIENT
  Age: 47 Year
  Sex: Female

DRUGS (2)
  1. METHOTREXATE [Suspect]
     Active Substance: METHOTREXATE
     Indication: Psoriasis
     Dosage: SINCE 5 MONTHS?ACCIDENTAL CONSUMPTION OF 105 MG WITHIN ONE WEEK
  2. METHOTREXATE [Suspect]
     Active Substance: METHOTREXATE
     Indication: Psoriasis
     Dosage: FOR ONE WEEK

REACTIONS (4)
  - Toxicity to various agents [Unknown]
  - Squamous cell carcinoma [Unknown]
  - Accidental overdose [Unknown]
  - Psoriasis [Unknown]
